FAERS Safety Report 4625782-5 (Version None)
Quarter: 2005Q1

REPORT INFORMATION
  Report Type: 
  Country: None (occurrence: None)
  Receive Date: 20050330
  Receipt Date: 20050309
  Transmission Date: 20050727
  Serious: Yes (Death, Other)
  Sender: FDA-Public Use
  Company Number: MAG-2005-0000343

PATIENT
  Age: 60 Year
  Sex: Male

DRUGS (8)
  1. OXYCODONE HCL [Suspect]
     Indication: PAIN
     Dosage: 20 MG, DAILY, ORAL
     Route: 048
     Dates: start: 20050225, end: 20050225
  2. LOXONIN (LOXOPROFEN SODIUM) [Concomitant]
  3. ALDACTONE [Concomitant]
  4. MAGNESIUM OXIDE (MAGNESIUM OXIDE) [Concomitant]
  5. FAMOTIDINE [Concomitant]
  6. PURSENNID (SENNA LEAF) [Concomitant]
  7. LENDORM [Concomitant]
  8. URSOSAN (URSODEOXYCHOLIC ACID) [Concomitant]

REACTIONS (17)
  - APNOEA [None]
  - AREFLEXIA [None]
  - BLOOD PRESSURE DECREASED [None]
  - BODY TEMPERATURE DECREASED [None]
  - DEPRESSED LEVEL OF CONSCIOUSNESS [None]
  - MALIGNANT NEOPLASM PROGRESSION [None]
  - PANCREATIC CARCINOMA [None]
  - PULSE ABSENT [None]
  - PUPILLARY LIGHT REFLEX TESTS ABNORMAL [None]
  - PUPILLARY REFLEX IMPAIRED [None]
  - PUPILS UNEQUAL [None]
  - RESPIRATORY ARREST [None]
  - RESPIRATORY RATE DECREASED [None]
  - TACHYCARDIA [None]
  - UNRESPONSIVE TO VERBAL STIMULI [None]
  - VASCULAR RUPTURE [None]
  - VEIN DISORDER [None]
